FAERS Safety Report 9345747 (Version 1)
Quarter: 2013Q2

REPORT INFORMATION
  Report Type: Spontaneous
  Country: US (occurrence: US)
  Receive Date: 20130613
  Receipt Date: 20130613
  Transmission Date: 20140414
  Serious: No
  Sender: FDA-Public Use
  Company Number: US-PFIZER INC-2013174254

PATIENT
  Sex: Female

DRUGS (1)
  1. GENOTROPIN [Suspect]
     Dosage: 0.8 MG, UNK
     Dates: start: 20130606

REACTIONS (4)
  - Dyspnoea [Unknown]
  - Syncope [Unknown]
  - Fatigue [Unknown]
  - Malaise [Unknown]
